FAERS Safety Report 21381126 (Version 15)
Quarter: 2025Q3

REPORT INFORMATION
  Report Type: Report from Study
  Country: US (occurrence: US)
  Receive Date: 20220927
  Receipt Date: 20250917
  Transmission Date: 20251021
  Serious: Yes (Hospitalization, Other)
  Sender: TAKEDA
  Company Number: US-TAKEDA-US202025591

PATIENT
  Age: 41 Year
  Sex: Male
  Weight: 109 kg

DRUGS (12)
  1. LANADELUMAB [Suspect]
     Active Substance: LANADELUMAB
     Indication: Immune system disorder
     Dosage: 300 MILLIGRAM, Q2WEEKS
     Dates: start: 20191018
  2. LANADELUMAB [Suspect]
     Active Substance: LANADELUMAB
  3. LANADELUMAB [Suspect]
     Active Substance: LANADELUMAB
  4. FIRAZYR [Suspect]
     Active Substance: ICATIBANT ACETATE
     Indication: Immune system disorder
  5. FIRAZYR [Suspect]
     Active Substance: ICATIBANT ACETATE
  6. KETOCONAZOLE [Concomitant]
     Active Substance: KETOCONAZOLE
  7. FLOMAX [Concomitant]
     Active Substance: TAMSULOSIN HYDROCHLORIDE
  8. HYDROCORTISONE [Concomitant]
     Active Substance: HYDROCORTISONE
  9. TRIAMCINOLONE ACETONIDE [Concomitant]
     Active Substance: TRIAMCINOLONE ACETONIDE
  10. HYDROCHLOROTHIAZIDE [Concomitant]
     Active Substance: HYDROCHLOROTHIAZIDE
     Indication: Product used for unknown indication
  11. DANAZOL [Concomitant]
     Active Substance: DANAZOL
     Indication: Product used for unknown indication
  12. ALOE [Concomitant]
     Active Substance: ALOE

REACTIONS (29)
  - COVID-19 pneumonia [Unknown]
  - Ligament sprain [Unknown]
  - Drug hypersensitivity [Unknown]
  - Abdominal discomfort [Unknown]
  - Tremor [Unknown]
  - Drug effect less than expected [Unknown]
  - Tooth fracture [Unknown]
  - Tooth abscess [Unknown]
  - Pain [Unknown]
  - Emotional distress [Unknown]
  - Nerve injury [Unknown]
  - Road traffic accident [Unknown]
  - Multiple allergies [Unknown]
  - Injection site irritation [Recovered/Resolved]
  - Insurance issue [Unknown]
  - Localised infection [Unknown]
  - Sneezing [Unknown]
  - Ocular discomfort [Unknown]
  - Product use issue [Unknown]
  - Product dose omission issue [Unknown]
  - Dysphonia [Unknown]
  - Gingivitis [Unknown]
  - Malaise [Unknown]
  - Tonsillar inflammation [Unknown]
  - Hereditary angioedema [Unknown]
  - Limb injury [Unknown]
  - Injection site pain [Recovered/Resolved]
  - Injection site erythema [Recovered/Resolved]
  - Infection [Unknown]

NARRATIVE: CASE EVENT DATE: 20250910
